FAERS Safety Report 8422830-1 (Version None)
Quarter: 2012Q2

REPORT INFORMATION
  Report Type: 
  Country: None (occurrence: None)
  Receive Date: 20120608
  Receipt Date: 20120606
  Transmission Date: 20120825
  Serious: Yes (Other)
  Sender: FDA-Public Use
  Company Number: PT-SP-2007-02284

PATIENT
  Sex: Male
  Weight: 90 kg

DRUGS (1)
  1. IMMUCYST [Suspect]
     Indication: TRANSITIONAL CELL CARCINOMA
     Route: 043
     Dates: start: 20040309, end: 20070323

REACTIONS (4)
  - MYCOBACTERIUM TUBERCULOSIS COMPLEX TEST POSITIVE [None]
  - PROSTATIC SPECIFIC ANTIGEN INCREASED [None]
  - PROSTATE INFECTION [None]
  - PROSTATITIS [None]
